FAERS Safety Report 11544495 (Version 1)
Quarter: 2015Q3

REPORT INFORMATION
  Report Type: Spontaneous
  Country: GB (occurrence: GB)
  Receive Date: 20150924
  Receipt Date: 20150924
  Transmission Date: 20151125
  Serious: Yes (Other)
  Sender: FDA-Public Use
  Company Number: GB-SUN PHARMACEUTICAL INDUSTRIES LTD-13SUNCA04P

PATIENT
  Age: 62 Year
  Sex: Male

DRUGS (3)
  1. CARBOPLATIN. [Suspect]
     Active Substance: CARBOPLATIN
     Indication: CHEMOTHERAPY
     Dosage: AUC 5 GIVEN INTRAVENOUSLY ON DAY 1
     Route: 042
  2. ETOPOSIDE. [Suspect]
     Active Substance: ETOPOSIDE
     Indication: CHEMOTHERAPY
     Dosage: 200 MG/M^2 IV ON DAY 1
     Route: 042
  3. ETOPOSIDE. [Suspect]
     Active Substance: ETOPOSIDE
     Dosage: 100 MG/M^2 PO BD ON DAYS 2 AND 3
     Route: 048

REACTIONS (4)
  - Small intestinal obstruction [Recovering/Resolving]
  - Oliguria [Recovering/Resolving]
  - Disease progression [Recovering/Resolving]
  - Hypotension [Recovering/Resolving]
